FAERS Safety Report 7743589-7 (Version None)
Quarter: 2011Q3

REPORT INFORMATION
  Report Type: 
  Country: None (occurrence: None)
  Receive Date: 20110912
  Receipt Date: 20110903
  Transmission Date: 20111222
  Serious: Yes (Other)
  Sender: FDA-Public Use
  Company Number: US-VERTEX PHARMACEUTICALS INC.-AE-2011-001334

PATIENT
  Sex: Male
  Weight: 86.26 kg

DRUGS (12)
  1. RIBAVIRIN [Concomitant]
     Indication: HEPATITIS C
     Dates: start: 20110826
  2. PEGASYS [Concomitant]
     Indication: HEPATITIS C
     Dates: start: 20110826
  3. CELEXA [Concomitant]
  4. AMBIEN [Concomitant]
  5. OPANA [Concomitant]
  6. INCIVEK [Suspect]
     Indication: HEPATITIS C
     Dates: start: 20110826
  7. LISINOPRIL [Concomitant]
  8. ATIVAN [Concomitant]
  9. OXYCODONE HCL [Concomitant]
  10. TOPROL-XL [Concomitant]
  11. OMEPRAZOLE [Concomitant]
  12. PANCRELIPASE [Concomitant]

REACTIONS (1)
  - LOSS OF CONSCIOUSNESS [None]
